FAERS Safety Report 7027190-9 (Version None)
Quarter: 2010Q4

REPORT INFORMATION
  Report Type: 
  Country: None (occurrence: None)
  Receive Date: 20101001
  Receipt Date: 20101001
  Transmission Date: 20110411
  Serious: Yes (Other)
  Sender: FDA-Public Use
  Company Number: None

PATIENT
  Age: 4 Year
  Sex: Female
  Weight: 14.9687 kg

DRUGS (1)
  1. FLOVENT HFA [Suspect]
     Indication: ASTHMA
     Dosage: 2 PUFFS TWICE DAILY INHAL
     Route: 055
     Dates: start: 20090805, end: 20090809

REACTIONS (4)
  - AGGRESSION [None]
  - AGITATION [None]
  - BITE [None]
  - LACERATION [None]
